FAERS Safety Report 4468158-6 (Version None)
Quarter: 2004Q4

REPORT INFORMATION
  Report Type: 
  Country: None (occurrence: None)
  Receive Date: 20041001
  Receipt Date: 20040916
  Transmission Date: 20050328
  Serious: Yes (Life-Threatening, Other)
  Sender: FDA-Public Use
  Company Number: C2003-1822.07

PATIENT
  Age: 18 Year
  Sex: Female

DRUGS (10)
  1. CYSTAGON [Suspect]
     Indication: CYSTINOSIS
     Dosage: 400MG/DAY ORAL
     Route: 048
  2. CYSTEAMINE EYE DROPS SIGMA TAU [Suspect]
     Dates: start: 20010913
  3. PREDNISONE [Concomitant]
  4. CYCLOSPORINE [Concomitant]
  5. SULFAMETHAZOLE/TRIMETHOPRIM [Concomitant]
  6. AZATHIOPRINE [Concomitant]
  7. ENALAPRIL MALEATE [Concomitant]
  8. LEVOTHYROXINE SODIUM [Concomitant]
  9. POTASSIUM PHOSPHATES [Concomitant]
  10. FAMOTIDINE [Concomitant]

REACTIONS (4)
  - DRUG TOLERANCE DECREASED [None]
  - HEADACHE [None]
  - INTRACRANIAL PRESSURE INCREASED [None]
  - PAPILLOEDEMA [None]
